FAERS Safety Report 15384144 (Version 1)
Quarter: 2018Q3

REPORT INFORMATION
  Report Type: Spontaneous
  Country: IT (occurrence: IT)
  Receive Date: 20180914
  Receipt Date: 20180914
  Transmission Date: 20181010
  Serious: Yes (Other)
  Sender: FDA-Public Use
  Company Number: IT-CONCORDIA PHARMACEUTICALS INC.-GSH201809-003285

PATIENT
  Sex: Female

DRUGS (6)
  1. ALMARYTM [Concomitant]
     Active Substance: FLECAINIDE ACETATE
  2. CRESTOR [Concomitant]
     Active Substance: ROSUVASTATIN CALCIUM
  3. CARDIOASPIRINA [Concomitant]
     Active Substance: ASPIRIN
  4. CONGESCOR [Concomitant]
     Active Substance: BISOPROLOL
  5. PLAQUENIL [Suspect]
     Active Substance: HYDROXYCHLOROQUINE SULFATE
     Indication: RHEUMATOID ARTHRITIS
     Route: 048
     Dates: start: 201806, end: 201808
  6. PLAQUENIL [Suspect]
     Active Substance: HYDROXYCHLOROQUINE SULFATE
     Route: 048
     Dates: start: 201808

REACTIONS (3)
  - Auditory nerve disorder [Recovering/Resolving]
  - Dizziness [Recovering/Resolving]
  - Rheumatoid arthritis [Unknown]

NARRATIVE: CASE EVENT DATE: 201808
